FAERS Safety Report 24030820 (Version 1)
Quarter: 2024Q2

REPORT INFORMATION
  Report Type: Spontaneous
  Country: CN (occurrence: CN)
  Receive Date: 20240628
  Receipt Date: 20240628
  Transmission Date: 20240716
  Serious: Yes (Hospitalization)
  Sender: FDA-Public Use
  Company Number: CN-NAPPMUNDI-GBR-2024-0117553

PATIENT
  Age: 75 Year
  Sex: Male
  Weight: 56 kg

DRUGS (1)
  1. OXYCODONE HYDROCHLORIDE [Suspect]
     Active Substance: OXYCODONE HYDROCHLORIDE
     Indication: Pain
     Dosage: 10 MILLIGRAM, BID
     Route: 048
     Dates: start: 20240616, end: 20240617

REACTIONS (4)
  - Irritability [Recovering/Resolving]
  - Tremor [Recovering/Resolving]
  - Insomnia [Recovering/Resolving]
  - Dry mouth [Recovering/Resolving]

NARRATIVE: CASE EVENT DATE: 20240617
